FAERS Safety Report 12210013 (Version 1)
Quarter: 2016Q1

REPORT INFORMATION
  Report Type: Spontaneous
  Country: US (occurrence: None)
  Receive Date: 20160323
  Receipt Date: 20160323
  Transmission Date: 20160526
  Serious: Yes (Hospitalization)
  Sender: FDA-Public Use
  Company Number: None

PATIENT
  Age: 82 Year
  Sex: Male
  Weight: 99.1 kg

DRUGS (1)
  1. INSULIN [Suspect]
     Active Substance: INSULIN NOS
     Indication: TYPE 1 DIABETES MELLITUS
     Dosage: 10 UNITS PM SQ
     Route: 058
     Dates: start: 20090217, end: 20160309

REACTIONS (2)
  - Hypoglycaemia [None]
  - Syncope [None]

NARRATIVE: CASE EVENT DATE: 20160309
